FAERS Safety Report 25156528 (Version 3)
Quarter: 2025Q2

REPORT INFORMATION
  Report Type: Spontaneous
  Country: US (occurrence: US)
  Receive Date: 20250403
  Receipt Date: 20250410
  Transmission Date: 20250717
  Serious: Yes (Hospitalization, Other)
  Sender: SANOFI AVENTIS
  Company Number: US-SA-2025SA095368

PATIENT
  Age: 66 Year
  Sex: Female
  Weight: 45.45 kg

DRUGS (29)
  1. DUPIXENT [Suspect]
     Active Substance: DUPILUMAB
     Indication: Asthma
     Dosage: 300 MG, QOW
     Route: 058
     Dates: start: 20240306
  2. ALEVE [Concomitant]
     Active Substance: NAPROXEN SODIUM
  3. ASPIRIN [Concomitant]
     Active Substance: ASPIRIN
  4. VITAMIN D3 [Concomitant]
     Active Substance: CHOLECALCIFEROL
  5. ELIQUIS [Concomitant]
     Active Substance: APIXABAN
  6. ONDANSETRON [Concomitant]
     Active Substance: ONDANSETRON
  7. SIMETHICONE (DIMETHICONE) [Concomitant]
     Active Substance: DIMETHICONE
  8. PREDNISONE [Concomitant]
     Active Substance: PREDNISONE
  9. DOXYCYCLINE HYCLATE [Concomitant]
     Active Substance: DOXYCYCLINE HYCLATE
  10. ALBUTEROL SULFATE [Concomitant]
     Active Substance: ALBUTEROL SULFATE
  11. ENOXAPARIN SODIUM [Concomitant]
     Active Substance: ENOXAPARIN SODIUM
  12. ACETAMINOPHEN\HYDROCODONE [Concomitant]
     Active Substance: ACETAMINOPHEN\HYDROCODONE
  13. METHOCARBAMOL [Concomitant]
     Active Substance: METHOCARBAMOL
  14. XARELTO [Concomitant]
     Active Substance: RIVAROXABAN
  15. TRELEGY ELLIPTA [Concomitant]
     Active Substance: FLUTICASONE FUROATE\UMECLIDINIUM BROMIDE\VILANTEROL TRIFENATATE
  16. SPIRIVA RESPIMAT [Concomitant]
     Active Substance: TIOTROPIUM BROMIDE
  17. ZEPBOUND [Concomitant]
     Active Substance: TIRZEPATIDE
  18. LAMICTAL [Concomitant]
     Active Substance: LAMOTRIGINE
  19. GAS RELIEF [Concomitant]
     Active Substance: DIMETHICONE
  20. CYMBALTA [Concomitant]
     Active Substance: DULOXETINE HYDROCHLORIDE
  21. BUSPIRONE [Concomitant]
     Active Substance: BUSPIRONE HYDROCHLORIDE
  22. WARFARIN SODIUM [Concomitant]
     Active Substance: WARFARIN SODIUM
  23. PRILOSEC [Concomitant]
     Active Substance: OMEPRAZOLE MAGNESIUM
  24. METHIMAZOLE [Concomitant]
     Active Substance: METHIMAZOLE
  25. VITAMIN D2 [Concomitant]
     Active Substance: ERGOCALCIFEROL
  26. MAGNESIUM [Concomitant]
     Active Substance: MAGNESIUM
  27. SINGULAIR [Concomitant]
     Active Substance: MONTELUKAST SODIUM
  28. ONDANSETRON HYDROCHLORIDE [Concomitant]
     Active Substance: ONDANSETRON HYDROCHLORIDE
  29. LIPITOR [Concomitant]
     Active Substance: ATORVASTATIN CALCIUM

REACTIONS (5)
  - Intestinal obstruction [Recovering/Resolving]
  - Pneumonia [Recovering/Resolving]
  - COVID-19 [Recovering/Resolving]
  - Nasopharyngitis [Unknown]
  - Surgery [Unknown]

NARRATIVE: CASE EVENT DATE: 20250101
